FAERS Safety Report 9214719 (Version 1)
Quarter: 2013Q2

REPORT INFORMATION
  Report Type: Report from Study
  Country: US (occurrence: US)
  Receive Date: 20130405
  Receipt Date: 20130405
  Transmission Date: 20140414
  Serious: Yes (Hospitalization)
  Sender: FDA-Public Use
  Company Number: US-ROCHE-1210753

PATIENT
  Age: 62 Year
  Sex: Male
  Weight: 79.09 kg

DRUGS (6)
  1. TRASTUZUMAB [Suspect]
     Indication: OESOPHAGEAL ADENOCARCINOMA
     Route: 042
     Dates: start: 20130108
  2. TRASTUZUMAB [Suspect]
     Dosage: OVER 30-60 MIN ON DAYS 8, 15, 22, 29 AND 36
     Route: 042
  3. TRASTUZUMAB [Suspect]
     Route: 042
  4. TRASTUZUMAB [Suspect]
     Dosage: MAINTENANCE THERAPY (BEGINNING 21-56 DAYS AFTER SURGERY)
     Route: 042
  5. PACLITAXEL [Suspect]
     Indication: OESOPHAGEAL ADENOCARCINOMA
     Dosage: OVER 1 HR ON DAYS 1, 8, 15, 22, 29 AND 36
     Route: 042
     Dates: start: 20130108
  6. CARBOPLATIN [Suspect]
     Indication: OESOPHAGEAL ADENOCARCINOMA
     Dosage: AUC=2, OVER 1 HR ON DAYS 1, 8, 15, 22, 29 AND 36
     Route: 042
     Dates: start: 20130108

REACTIONS (1)
  - Embolism [Recovering/Resolving]
